FAERS Safety Report 7543266-1 (Version None)
Quarter: 2011Q2

REPORT INFORMATION
  Report Type: 
  Country: None (occurrence: None)
  Receive Date: 20110524
  Receipt Date: 20110318
  Transmission Date: 20111010
  Serious: No
  Sender: FDA-Public Use
  Company Number: 020938

PATIENT
  Sex: Female
  Weight: 71 kg

DRUGS (6)
  1. IMURAN [Concomitant]
  2. CIMZIA [Suspect]
     Indication: CROHN'S DISEASE
     Dosage: 400 MG 1X/2 WEEKS SUBCUTANEOUS
     Route: 058
     Dates: start: 20100730
  3. MERCAPTOPURINE [Suspect]
     Indication: CROHN'S DISEASE
     Dosage: 50 MG ORAL
     Route: 048
     Dates: end: 20100805
  4. IMITREX [Concomitant]
  5. VITAMINS NOS [Concomitant]
  6. LEXAPRO [Concomitant]

REACTIONS (15)
  - WHITE BLOOD CELL COUNT DECREASED [None]
  - TEMPOROMANDIBULAR JOINT SYNDROME [None]
  - PAIN IN EXTREMITY [None]
  - ARTHRALGIA [None]
  - INFREQUENT BOWEL MOVEMENTS [None]
  - FATIGUE [None]
  - MUSCLE SPASMS [None]
  - SKIN DISCOLOURATION [None]
  - MIGRAINE [None]
  - CONSTIPATION [None]
  - WEIGHT INCREASED [None]
  - DRUG ERUPTION [None]
  - DRUG INEFFECTIVE [None]
  - INJECTION SITE HAEMORRHAGE [None]
  - RASH [None]
